FAERS Safety Report 7055539-X (Version None)
Quarter: 2010Q4

REPORT INFORMATION
  Report Type: 
  Country: None (occurrence: None)
  Receive Date: 20101019
  Receipt Date: 20101019
  Transmission Date: 20110411
  Serious: Yes (Other)
  Sender: FDA-Public Use
  Company Number: None

PATIENT

DRUGS (1)
  1. ICYHOT MENTHOL 16% CHATTEM [Suspect]
     Indication: NECK PAIN
     Dates: start: 20101008, end: 20101008

REACTIONS (1)
  - PRODUCT LABEL ISSUE [None]
